FAERS Safety Report 5119986-5 (Version None)
Quarter: 2006Q3

REPORT INFORMATION
  Report Type: 
  Country: None (occurrence: None)
  Receive Date: 20060929
  Receipt Date: 20060918
  Transmission Date: 20061208
  Serious: Yes (Other)
  Sender: FDA-Public Use
  Company Number: 2006112749

PATIENT
  Sex: Female

DRUGS (1)
  1. NEURONTIN [Suspect]
     Dosage: ORAL
     Route: 048
     Dates: start: 20060301, end: 20060101

REACTIONS (2)
  - BLOOD CREATINE INCREASED [None]
  - NARCOLEPSY [None]
